FAERS Safety Report 10957726 (Version 3)
Quarter: 2015Q3

REPORT INFORMATION
  Report Type: Spontaneous
  Country: CA (occurrence: CA)
  Receive Date: 20150326
  Receipt Date: 20150821
  Transmission Date: 20151125
  Serious: Yes (Other)
  Sender: FDA-Public Use
  Company Number: CA-PFIZER INC-2015100788

PATIENT
  Age: 59 Year
  Sex: Female

DRUGS (3)
  1. SOMAVERT [Suspect]
     Active Substance: PEGVISOMANT
     Dosage: 15 MG, 5X/WEEK
     Dates: start: 201506
  2. SOMAVERT [Suspect]
     Active Substance: PEGVISOMANT
     Dosage: 20 MG, UNK
  3. SOMAVERT [Suspect]
     Active Substance: PEGVISOMANT
     Dosage: 15 MG, 1X/DAY
     Dates: end: 201506

REACTIONS (5)
  - Cataract [Unknown]
  - Lymphadenopathy [Unknown]
  - Breast cancer [Unknown]
  - Blood pressure increased [Not Recovered/Not Resolved]
  - Insulin-like growth factor decreased [Unknown]

NARRATIVE: CASE EVENT DATE: 2014
